FAERS Safety Report 4834185-X (Version None)
Quarter: 2005Q4

REPORT INFORMATION
  Report Type: 
  Country: None (occurrence: None)
  Receive Date: 20051122
  Receipt Date: 20051007
  Transmission Date: 20060501
  Serious: Yes (Hospitalization)
  Sender: FDA-Public Use
  Company Number: 2005UW15092

PATIENT
  Age: 20621 Day
  Sex: Male
  Weight: 107.3 kg

DRUGS (16)
  1. CRESTOR [Suspect]
     Indication: HYPERLIPIDAEMIA
     Route: 048
     Dates: end: 20050727
  2. ANGIOMAX [Suspect]
     Indication: ACUTE CORONARY SYNDROME
     Route: 040
     Dates: start: 20050727, end: 20050727
  3. ANGIOMAX [Suspect]
     Route: 042
     Dates: start: 20050727, end: 20050730
  4. NITROGLYCERIN [Concomitant]
  5. ASPIRIN [Concomitant]
  6. LOPRESSOR [Concomitant]
  7. PROTONIX [Concomitant]
  8. IMDUR [Concomitant]
  9. ATIVAN [Concomitant]
  10. BACTROBAN [Concomitant]
  11. VANCOMYCIN [Concomitant]
  12. POTASSIUM CHLORIDE [Concomitant]
  13. HEPARIN [Concomitant]
     Route: 042
  14. BENADRYL [Concomitant]
  15. VERSED [Concomitant]
  16. FENTANYL [Concomitant]

REACTIONS (6)
  - HEPATIC CIRRHOSIS [None]
  - HEPATIC ENZYME INCREASED [None]
  - HEPATIC NEOPLASM MALIGNANT [None]
  - HEPATITIS ALCOHOLIC [None]
  - PORTAL VEIN THROMBOSIS [None]
  - SPLENIC INFARCTION [None]
